FAERS Safety Report 15265858 (Version 2)
Quarter: 2018Q3

REPORT INFORMATION
  Report Type: Spontaneous
  Country: GB (occurrence: GB)
  Receive Date: 20180810
  Receipt Date: 20180927
  Transmission Date: 20181010
  Serious: Yes (Other)
  Sender: FDA-Public Use
  Company Number: GB-PFIZER INC-2018314770

PATIENT
  Age: 18 Year
  Sex: Male
  Weight: 42 kg

DRUGS (12)
  1. GABAPENTIN. [Interacting]
     Active Substance: GABAPENTIN
     Dosage: 600 MG, 1X/DAY (THE NIGHT BEFORE SURGERY AND ON THE MORNING OF SURGERY)
     Dates: start: 20180513, end: 20180515
  2. PROPOFOL. [Interacting]
     Active Substance: PROPOFOL
     Indication: SEDATION
  3. MIDAZOLAM [Interacting]
     Active Substance: MIDAZOLAM HYDROCHLORIDE
     Indication: ANXIETY
     Dosage: 20 MG, UNK (HALF AN HOUR BEFORE INDUCTION OF ANAESTHESIA)
     Dates: start: 20180514, end: 20180514
  4. PROPOFOL. [Interacting]
     Active Substance: PROPOFOL
     Indication: ANAESTHESIA
     Dosage: 3.3 MCG/ML
     Route: 040
     Dates: start: 20180514, end: 20180514
  5. TRANEXAMIC ACID. [Suspect]
     Active Substance: TRANEXAMIC ACID
     Indication: SEDATION
     Dosage: UNK
     Route: 040
     Dates: start: 20180514, end: 20180514
  6. CLONIDINE. [Interacting]
     Active Substance: CLONIDINE
     Indication: SEDATION
     Dosage: 60 UG, SINGLE (4 ALIQUOTS OF 15 MICROGRAMS OVER SEVERAL HOURS)
     Route: 040
     Dates: start: 20180514, end: 20180514
  7. KETAMINE HCL [Interacting]
     Active Substance: KETAMINE HYDROCHLORIDE
     Indication: SEDATION
     Dosage: 50 MG, 1X/DAY (25 MG BEFORE SKIN INCISION AND 25 MG ABOUT AN HOUR BEFORE THE END OF SURGERY)
     Route: 040
     Dates: start: 20180514, end: 20180514
  8. DIAZEPAM. [Interacting]
     Active Substance: DIAZEPAM
     Indication: ANXIETY
     Dosage: 3.5 MG, UNK
     Dates: start: 20180513, end: 20180513
  9. MAGNESIUM SULFATE. [Interacting]
     Active Substance: MAGNESIUM SULFATE
     Dosage: 2.5 G, 4X/DAY
  10. FENTANYL. [Interacting]
     Active Substance: FENTANYL
     Indication: SEDATION
     Dosage: 100 UG, SINGLE
     Route: 040
     Dates: start: 20180514, end: 20180516
  11. GABAPENTIN. [Interacting]
     Active Substance: GABAPENTIN
     Dosage: 900 MG, 1X/DAY
  12. REMIFENTANIL [Interacting]
     Active Substance: REMIFENTANIL
     Indication: SEDATION
     Dosage: 0.14 UG/KG, 1X/DAY (PER MINUTE)
     Route: 040
     Dates: start: 20180514, end: 20180514

REACTIONS (7)
  - Nystagmus [Recovered/Resolved]
  - Drug interaction [Recovered/Resolved]
  - Somnolence [Recovered/Resolved]
  - Delirium [Recovered/Resolved]
  - Disorientation [Recovered/Resolved]
  - Confusional state [Recovered/Resolved]
  - Aphasia [Recovered/Resolved]

NARRATIVE: CASE EVENT DATE: 20180514
